FAERS Safety Report 4845177-9 (Version None)
Quarter: 2005Q4

REPORT INFORMATION
  Report Type: 
  Country: None (occurrence: None)
  Receive Date: 20051129
  Receipt Date: 20051115
  Transmission Date: 20060501
  Serious: Yes (Other)
  Sender: FDA-Public Use
  Company Number: USA0509109036

PATIENT
  Age: 7 Year
  Sex: Male
  Weight: 50.3 kg

DRUGS (2)
  1. STRATTERA [Suspect]
     Indication: AUTISM
     Dosage: 25 MG
     Dates: start: 20031201, end: 20050922
  2. ABILIFY [Concomitant]

REACTIONS (3)
  - ABDOMINAL PAIN UPPER [None]
  - ALANINE AMINOTRANSFERASE INCREASED [None]
  - ASPARTATE AMINOTRANSFERASE INCREASED [None]
